FAERS Safety Report 12374760 (Version 2)
Quarter: 2016Q2

REPORT INFORMATION
  Report Type: Spontaneous
  Country: US (occurrence: US)
  Receive Date: 20160517
  Receipt Date: 20160520
  Transmission Date: 20160815
  Serious: No
  Sender: FDA-Public Use
  Company Number: US-PFIZER INC-2016228046

PATIENT
  Sex: Female

DRUGS (2)
  1. LYRICA [Suspect]
     Active Substance: PREGABALIN
     Dosage: 75 MG, UNK
  2. MOTRIN [Suspect]
     Active Substance: IBUPROFEN
     Dosage: 600 MG, UNK
     Dates: start: 201603

REACTIONS (2)
  - Chest pain [Unknown]
  - Burning sensation [Unknown]
